FAERS Safety Report 23260386 (Version 1)
Quarter: 2023Q4

REPORT INFORMATION
  Report Type: Spontaneous
  Country: AT (occurrence: AT)
  Receive Date: 20231205
  Receipt Date: 20231205
  Transmission Date: 20240110
  Serious: Yes (Hospitalization)
  Sender: FDA-Public Use
  Company Number: AT-CELLTRION INC.-2021AT019463

PATIENT

DRUGS (30)
  1. TRASTUZUMAB [Suspect]
     Active Substance: TRASTUZUMAB
     Indication: HER2 positive breast cancer
     Dosage: 8 MG/KG, EVERY 3 WEEKS (MOST RECENT DOSE PRIOR TO THE EVENT: 07/NOV/2018)
     Route: 042
     Dates: start: 20181016, end: 20200226
  2. TRASTUZUMAB [Suspect]
     Active Substance: TRASTUZUMAB
     Indication: Breast cancer metastatic
     Dosage: 6 MG/KG (MOST RECENT DOSE PRIOR TO AE 26/FEB/2020)
     Route: 065
     Dates: start: 20181016
  3. DENOSUMAB [Suspect]
     Active Substance: DENOSUMAB
     Indication: HER2 positive breast cancer
     Dosage: 120 MG/KG, Q4WEEKS
     Route: 058
     Dates: start: 20190326
  4. DENOSUMAB [Suspect]
     Active Substance: DENOSUMAB
     Indication: Breast cancer metastatic
  5. PERTUZUMAB [Suspect]
     Active Substance: PERTUZUMAB
     Indication: HER2 positive breast cancer
     Dosage: 840 MG/KG, EVERY 3 WEEKS (MOST RECENT DOSE PRIOR TO THE EVENT: 07/NOV/2018)
     Route: 042
     Dates: start: 20181016, end: 20200226
  6. PERTUZUMAB [Suspect]
     Active Substance: PERTUZUMAB
     Indication: Breast cancer metastatic
     Dosage: 420 MG, EVERY 3 WEEKS (MOST RECENT DOSE PRIOR TO AE 26/FEB/2020)
     Route: 065
     Dates: start: 20181016
  7. ADO-TRASTUZUMAB EMTANSINE [Suspect]
     Active Substance: ADO-TRASTUZUMAB EMTANSINE
     Indication: HER2 positive breast cancer
     Dosage: 3.6 MG, EVERY 3 WEEKS
     Route: 042
     Dates: start: 20200227, end: 20200703
  8. ADO-TRASTUZUMAB EMTANSINE [Suspect]
     Active Substance: ADO-TRASTUZUMAB EMTANSINE
     Indication: Breast cancer metastatic
  9. PACLITAXEL [Suspect]
     Active Substance: PACLITAXEL
     Indication: HER2 positive breast cancer
     Dosage: 135.48 MG/M2, EVERY 1 WEEK
     Route: 042
     Dates: start: 20181017, end: 20200226
  10. PACLITAXEL [Suspect]
     Active Substance: PACLITAXEL
     Indication: Breast cancer metastatic
     Dosage: 138.1 MG/KG, 1/WEEK (MOST RECENT DOSE PRIOR TO AE 26/FEB/2020)
     Route: 065
     Dates: start: 20181017
  11. LAPATINIB [Suspect]
     Active Substance: LAPATINIB
     Indication: HER2 positive breast cancer
     Dosage: 1250 MG, QD (MOST RECENT DOSE PRIOR TO AE 4/AUG/2021)
     Route: 048
     Dates: start: 20200715, end: 20210804
  12. LAPATINIB [Suspect]
     Active Substance: LAPATINIB
     Indication: Breast cancer metastatic
  13. CAPECITABINE [Suspect]
     Active Substance: CAPECITABINE
     Indication: HER2 positive breast cancer
     Dosage: 2000 MG, (2 TIMES IN 1 DAY) (MOST RECENT DOSE PRIOR TO AE /SEP/2021)
     Route: 048
     Dates: start: 20200715, end: 202109
  14. CAPECITABINE [Suspect]
     Active Substance: CAPECITABINE
     Indication: Breast cancer metastatic
  15. RANITIDINE HYDROCHLORIDE [Concomitant]
     Active Substance: RANITIDINE HYDROCHLORIDE
     Dosage: ONGOING = CHECKED
     Dates: start: 20181017
  16. BUPRENORPHINE HYDROCHLORIDE [Concomitant]
     Active Substance: BUPRENORPHINE HYDROCHLORIDE
     Dosage: ONGOING = CHECKED
     Dates: start: 20181023
  17. METOCLOPRAMIDE HYDROCHLORIDE [Concomitant]
     Active Substance: METOCLOPRAMIDE HYDROCHLORIDE
     Dosage: ONGOING = CHECKED
     Dates: start: 20181023
  18. CAPSAICIN [Concomitant]
     Active Substance: CAPSAICIN
     Indication: General physical health deterioration
     Dosage: ONGOING = NOT CHECKED
     Dates: start: 20200826, end: 20200917
  19. EMEND [Concomitant]
     Active Substance: APREPITANT
     Dosage: ONGOING = CHECKED
     Dates: start: 20181120
  20. ZOFRAN [Concomitant]
     Active Substance: ONDANSETRON HYDROCHLORIDE
     Dosage: ONGOING = CHECKED
     Dates: start: 20181023
  21. ASTEC [BUPRENORPHINE] [Concomitant]
     Dosage: ONGOING = CHECKED
     Dates: start: 20181023
  22. LACTULOSE [Concomitant]
     Active Substance: LACTULOSE
     Dosage: ONGOING = CHECKED
     Dates: start: 20200826
  23. ZOFRAN [Concomitant]
     Active Substance: ONDANSETRON HYDROCHLORIDE
     Dosage: ONGOING = CHECKED
     Dates: start: 20181017
  24. DIPHENHYDRAMINE HYDROCHLORIDE [Concomitant]
     Active Substance: DIPHENHYDRAMINE HYDROCHLORIDE
     Dosage: ONGOING = CHECKED
  25. NEURONTIN [Concomitant]
     Active Substance: GABAPENTIN
     Dosage: ONGOING = CHECKED
     Dates: start: 20181023
  26. POLYETHYLENE GLYCOL 3350\POTASSIUM CHLORIDE\SODIUM BICARBONATE\SODIUM [Concomitant]
     Active Substance: POLYETHYLENE GLYCOL 3350\POTASSIUM CHLORIDE\SODIUM BICARBONATE\SODIUM CHLORIDE
     Dosage: ONGOING = CHECKED
     Dates: start: 20181023
  27. NOVALGIN (METAMIZOLE SODIUM) [Concomitant]
     Active Substance: METAMIZOLE SODIUM
     Dosage: ONGOING = CHECKED
     Dates: start: 20181023
  28. PARACODIN [DIHYDROCODEINE] [Concomitant]
     Dosage: ONGOING = CHECKED
     Dates: start: 20180715
  29. HYDROMORPHONE HYDROCHLORIDE [Concomitant]
     Active Substance: HYDROMORPHONE HYDROCHLORIDE
     Indication: General physical health deterioration
     Dosage: ONGOING = CHECKED
     Dates: start: 20200826
  30. DEXAMETHASONE [Concomitant]
     Active Substance: DEXAMETHASONE
     Dosage: ONGOING = CHECKED
     Dates: start: 20181017

REACTIONS (2)
  - General physical health deterioration [Recovered/Resolved]
  - Ejection fraction decreased [Recovered/Resolved]

NARRATIVE: CASE EVENT DATE: 20200806
